FAERS Safety Report 7934927-0 (Version None)
Quarter: 2011Q4

REPORT INFORMATION
  Report Type: 
  Country: None (occurrence: None)
  Receive Date: 20111118
  Receipt Date: 20111104
  Transmission Date: 20120403
  Serious: Yes (Other)
  Sender: FDA-Public Use
  Company Number: 2011AP002096

PATIENT
  Age: 30 Year
  Sex: Male

DRUGS (1)
  1. CITALOPRAM HYDROBROMIDE [Suspect]
     Indication: DEPRESSION
     Dosage: 20 MG
     Route: 048
     Dates: start: 20110728, end: 20110830

REACTIONS (4)
  - TREMOR [None]
  - FALL [None]
  - WHITE BLOOD CELL COUNT INCREASED [None]
  - HALLUCINATION [None]
